FAERS Safety Report 15952410 (Version 1)
Quarter: 2019Q1

REPORT INFORMATION
  Report Type: Report from Study
  Country: None (occurrence: GR)
  Receive Date: 20190212
  Receipt Date: 20190212
  Transmission Date: 20190417
  Serious: Yes (Other)
  Sender: FDA-Public Use
  Company Number: GR-ABBVIE-19S-066-2659560-00

PATIENT
  Age: 69 Year
  Sex: Male
  Weight: 65 kg

DRUGS (4)
  1. DUODOPA [Suspect]
     Active Substance: CARBIDOPA\LEVODOPA
     Indication: PARKINSON^S DISEASE
     Dosage: MD:10.0ML; CR:3.2ML/H; ED:1.6ML
     Route: 050
     Dates: start: 20150305
  2. FLAGYL [Concomitant]
     Active Substance: METRONIDAZOLE\METRONIDAZOLE HYDROCHLORIDE
     Indication: PRODUCT USED FOR UNKNOWN INDICATION
     Dates: start: 20190118
  3. FORTIMEL EXTRA [Concomitant]
     Active Substance: DIETARY SUPPLEMENT
     Indication: PRODUCT USED FOR UNKNOWN INDICATION
     Route: 048
     Dates: start: 20190131
  4. FUCIDIN [Concomitant]
     Active Substance: FUSIDATE SODIUM
     Indication: PRODUCT USED FOR UNKNOWN INDICATION
     Route: 048
     Dates: start: 20190130

REACTIONS (12)
  - Pulmonary oedema [Unknown]
  - Spinal cord injury [Recovering/Resolving]
  - Dysphonia [Recovered/Resolved]
  - Choking [Recovered/Resolved]
  - Feeding disorder [Recovered/Resolved]
  - Mobility decreased [Recovering/Resolving]
  - General physical health deterioration [Recovered/Resolved]
  - Fall [Recovered/Resolved]
  - Feeding disorder [Recovered/Resolved]
  - Dysphagia [Recovered/Resolved]
  - Gait disturbance [Recovered/Resolved]
  - Cough [Recovered/Resolved]

NARRATIVE: CASE EVENT DATE: 20181201
